FAERS Safety Report 25970619 (Version 1)
Quarter: 2025Q4

REPORT INFORMATION
  Report Type: Spontaneous
  Country: US (occurrence: US)
  Receive Date: 20251028
  Receipt Date: 20251028
  Transmission Date: 20260117
  Serious: No
  Sender: NOVO NORDISK
  Company Number: US-NOVOPROD-1315015

PATIENT
  Sex: Female

DRUGS (1)
  1. SOGROYA [Suspect]
     Active Substance: SOMAPACITAN-BECO
     Indication: Small for dates baby
     Dosage: 8.2 MG, QW
     Route: 058
     Dates: start: 202402

REACTIONS (1)
  - Weight increased [Unknown]
